FAERS Safety Report 24580949 (Version 2)
Quarter: 2024Q4

REPORT INFORMATION
  Report Type: Spontaneous
  Country: US (occurrence: US)
  Receive Date: 20241105
  Receipt Date: 20241112
  Transmission Date: 20250115
  Serious: No
  Sender: PFIZER
  Company Number: US-PFIZER INC-202400290876

PATIENT
  Sex: Female

DRUGS (2)
  1. NURTEC ODT [Suspect]
     Active Substance: RIMEGEPANT SULFATE
     Dosage: UNK
  2. SUCRALOSE [Suspect]
     Active Substance: SUCRALOSE
     Dosage: UNK

REACTIONS (3)
  - Allergic reaction to excipient [Unknown]
  - Abdominal pain upper [Unknown]
  - Abdominal discomfort [Unknown]
